FAERS Safety Report 5254171-8 (Version None)
Quarter: 2007Q1

REPORT INFORMATION
  Report Type: 
  Country: None (occurrence: None)
  Receive Date: 20070302
  Receipt Date: 20070221
  Transmission Date: 20070707
  Serious: Yes (Hospitalization, Other)
  Sender: FDA-Public Use
  Company Number: US-MERCK-0608USA02227

PATIENT
  Age: 70 Year
  Sex: Female

DRUGS (2)
  1. FOSAMAX [Suspect]
     Indication: OSTEOPOROSIS
     Route: 048
     Dates: start: 19971101, end: 20060101
  2. FOSAMAX PLUS D [Suspect]
     Route: 048

REACTIONS (4)
  - ARTHROPATHY [None]
  - CATARACT [None]
  - DEPRESSION [None]
  - OSTEONECROSIS [None]
